FAERS Safety Report 11870385 (Version 1)
Quarter: 2015Q4

REPORT INFORMATION
  Report Type: Spontaneous
  Country: US (occurrence: None)
  Receive Date: 20151223
  Receipt Date: 20151223
  Transmission Date: 20160305
  Serious: No
  Sender: FDA-Public Use
  Company Number: None

PATIENT
  Age: 51 Year
  Sex: Female

DRUGS (1)
  1. REBIF [Suspect]
     Active Substance: INTERFERON BETA-1A
     Indication: MULTIPLE SCLEROSIS
     Dosage: ONE SYRINGE
     Route: 058
     Dates: start: 20151112, end: 20151222

REACTIONS (4)
  - Irritability [None]
  - Erythema [None]
  - Swelling [None]
  - Injection site swelling [None]

NARRATIVE: CASE EVENT DATE: 20151216
